FAERS Safety Report 9097745 (Version 9)
Quarter: 2013Q2

REPORT INFORMATION
  Report Type: Report from Study
  Country: FR (occurrence: FR)
  Receive Date: 20130212
  Receipt Date: 20130626
  Transmission Date: 20140414
  Serious: Yes (Hospitalization)
  Sender: FDA-Public Use
  Company Number: FR-ROCHE-1190269

PATIENT
  Age: 12 Year
  Sex: Female
  Weight: 47 kg

DRUGS (16)
  1. BEVACIZUMAB [Suspect]
     Indication: RHABDOMYOSARCOMA
     Dosage: LAST DOSE PRIOR TO SAE: 09/APR/2013, 03/MAY/2013
     Route: 042
     Dates: start: 20130121
  2. BEVACIZUMAB [Suspect]
     Indication: SARCOMA
  3. ACTINOMYCIN D [Suspect]
     Indication: RHABDOMYOSARCOMA
     Dosage: LAST DOSE PRIOR TO SAE: 04/MAY/2013,
     Route: 042
     Dates: start: 20130121
  4. ACTINOMYCIN D [Suspect]
     Indication: SARCOMA
  5. DOXORUBICIN [Suspect]
     Indication: RHABDOMYOSARCOMA
     Dosage: LAST DOSE PRIOR TO SAE: 10/APR/2013
     Route: 042
     Dates: start: 20130121
  6. DOXORUBICIN [Suspect]
     Indication: SARCOMA
  7. VINCRISTIN [Suspect]
     Indication: RHABDOMYOSARCOMA
     Dosage: LAST DOSE PRIOR TO SAE: 09/APR/2013, 03/MAY/2013
     Route: 042
     Dates: start: 20130121
  8. VINCRISTIN [Suspect]
     Indication: SARCOMA
  9. IFOSFAMIDE [Suspect]
     Indication: RHABDOMYOSARCOMA
     Dosage: LAST DOSE PRIOR TO SAE: 10/APR/2013, 04/MAY/2013
     Route: 042
     Dates: start: 20130121
  10. IFOSFAMIDE [Suspect]
     Indication: SARCOMA
  11. FORLAX (FRANCE) [Concomitant]
     Route: 065
     Dates: start: 20130128
  12. FORLAX (FRANCE) [Concomitant]
     Route: 065
     Dates: start: 20130420, end: 20130420
  13. BACTRIM [Concomitant]
     Route: 065
     Dates: start: 20130120
  14. LUTENYL [Concomitant]
     Route: 065
     Dates: start: 20130120
  15. RIVOTRIL [Concomitant]
     Route: 065
     Dates: start: 20130514, end: 20130516
  16. FENTANYL [Concomitant]
     Route: 065
     Dates: start: 20130513, end: 20130521

REACTIONS (3)
  - Febrile bone marrow aplasia [Recovered/Resolved]
  - Febrile bone marrow aplasia [Recovered/Resolved]
  - Mucosal inflammation [Recovered/Resolved]
